FAERS Safety Report 26019732 (Version 1)
Quarter: 2025Q4

REPORT INFORMATION
  Report Type: Spontaneous
  Country: US (occurrence: US)
  Receive Date: 20251110
  Receipt Date: 20251110
  Transmission Date: 20260118
  Serious: Yes (Death, Hospitalization, Other)
  Sender: APOTEX
  Company Number: US-APOTEX-2025AP032444

PATIENT
  Age: 74 Year
  Sex: Male

DRUGS (7)
  1. CARFILZOMIB [Suspect]
     Active Substance: CARFILZOMIB
     Indication: Plasma cell myeloma
     Dosage: 40 MILLIGRAM (20 MG/M2) DAY 0
     Route: 042
  2. CARFILZOMIB [Suspect]
     Active Substance: CARFILZOMIB
     Dosage: 110 MILLIGRAM (55 MG/M2) DAY 7
     Route: 042
  3. CARFILZOMIB [Suspect]
     Active Substance: CARFILZOMIB
     Dosage: 110 MILLIGRAM (55 MG/M2) DAY 14
     Route: 042
  4. LENALIDOMIDE [Suspect]
     Active Substance: LENALIDOMIDE
     Indication: Plasma cell myeloma
     Dosage: UNK
     Route: 065
  5. DEXAMETHASONE [Concomitant]
     Active Substance: DEXAMETHASONE
     Indication: Plasma cell myeloma
     Dosage: UNK
     Route: 065
  6. METHYLPREDNISOLONE [Concomitant]
     Active Substance: METHYLPREDNISOLONE
     Indication: Product used for unknown indication
     Dosage: 125 MILLIGRAM (DAY 14)
     Route: 042
  7. DIPHENHYDRAMINE [Concomitant]
     Active Substance: DIPHENHYDRAMINE
     Indication: Product used for unknown indication
     Dosage: 25 MILLIGRAM (DAY 14)
     Route: 042

REACTIONS (11)
  - Cytokine release syndrome [Fatal]
  - Multiple organ dysfunction syndrome [Fatal]
  - Pancytopenia [Unknown]
  - Hypoxia [Unknown]
  - Encephalopathy [Unknown]
  - Tachypnoea [Unknown]
  - General physical health deterioration [Unknown]
  - Confusional state [Unknown]
  - Hypotension [Unknown]
  - Pyrexia [Unknown]
  - Tachycardia [Unknown]
